FAERS Safety Report 7650738-8 (Version None)
Quarter: 2011Q3

REPORT INFORMATION
  Report Type: 
  Country: None (occurrence: None)
  Receive Date: 20110802
  Receipt Date: 20110728
  Transmission Date: 20111222
  Serious: Yes (Hospitalization, Other)
  Sender: FDA-Public Use
  Company Number: JP-PFIZER INC-2011173467

PATIENT
  Age: 62 Year
  Sex: Female

DRUGS (5)
  1. PREDNISOLONE [Suspect]
     Indication: GLOMERULONEPHRITIS RAPIDLY PROGRESSIVE
     Dosage: 30 MG, 1X/DAY
  2. PREDNISOLONE [Suspect]
     Indication: PYREXIA
     Dosage: 30 MG, 1X/DAY
  3. PREDNISOLONE [Suspect]
     Indication: ARTHRALGIA
     Dosage: 45 MG, 1X/DAY
  4. PREDNISOLONE [Suspect]
     Dosage: 20 MG, 1X/DAY
  5. METHYLPREDNISOLONE [Suspect]
     Indication: GLOMERULONEPHRITIS RAPIDLY PROGRESSIVE
     Dosage: 0.5 G/DAY X 3 DAYS

REACTIONS (4)
  - PLATELET COUNT DECREASED [None]
  - ANAEMIA [None]
  - PULMONARY ALVEOLAR HAEMORRHAGE [None]
  - VASCULITIS [None]
